FAERS Safety Report 18249212 (Version 12)
Quarter: 2023Q2

REPORT INFORMATION
  Report Type: Other
  Country: AT (occurrence: AT)
  Receive Date: 20200910
  Receipt Date: 20230424
  Transmission Date: 20230721
  Serious: Yes (Hospitalization, Other)
  Sender: FDA-Public Use
  Company Number: AT-ROCHE-2215193

PATIENT
  Age: 63 Year
  Sex: Female
  Weight: 80.4 kg

DRUGS (40)
  1. CAPECITABINE [Suspect]
     Active Substance: CAPECITABINE
     Indication: Breast cancer metastatic
     Dosage: MOST RECENT DOSE PRIOR TO THE EVENT LYMPH NODE METASTATIS AXILLA AND PORT A CATH INFECTION: 08/JAN/2
     Route: 048
     Dates: start: 20191002, end: 20200107
  2. VINORELBINE [Suspect]
     Active Substance: VINORELBINE TARTRATE
     Indication: Breast cancer metastatic
     Route: 042
     Dates: start: 20200422
  3. ADO-TRASTUZUMAB EMTANSINE [Suspect]
     Active Substance: ADO-TRASTUZUMAB EMTANSINE
     Indication: Breast cancer metastatic
     Route: 042
     Dates: start: 20190306, end: 20190909
  4. LAPATINIB [Suspect]
     Active Substance: LAPATINIB
     Indication: Breast cancer metastatic
     Dosage: MOST RECENT DOSE PRIOR TO THE EVENT LYMPH NODE METASTATIS AXILLA AND PORT A CATH INFECTION: 08/JAN/2
     Route: 048
     Dates: start: 20191002, end: 20200107
  5. BLEOMYCIN [Suspect]
     Active Substance: BLEOMYCIN SULFATE
     Indication: Breast cancer metastatic
     Dosage: DRUG WAS DISCONTINUED AS PLANNED NUMBER OF CYCLES COMPLETED.
     Route: 042
     Dates: start: 20200519, end: 20200519
  6. BLEOMYCIN [Suspect]
     Active Substance: BLEOMYCIN SULFATE
     Dosage: DRUG WAS DISCONTINUED AS PLANNED NUMBER OF CYCLES COMPLETED.
     Route: 042
     Dates: start: 20210105, end: 20210105
  7. PERTUZUMAB [Suspect]
     Active Substance: PERTUZUMAB
     Indication: Breast cancer metastatic
     Dosage: MOST RECENT DOSE PRIOR TO THE EVENT WORSENING OF BRAIN METASTASES: 17/MAR/2017?MOST RECENT DOSE PRIO
     Route: 041
     Dates: start: 20170224, end: 20170224
  8. TRASTUZUMAB [Suspect]
     Active Substance: TRASTUZUMAB
     Indication: Breast cancer metastatic
     Dosage: MOST RECENT DOSE PRIOR TO THE EVENTS: 10/AUG/2017
     Route: 041
     Dates: start: 20170224, end: 20170224
  9. DOCETAXEL [Suspect]
     Active Substance: DOCETAXEL
     Indication: Breast cancer metastatic
     Dosage: MOST RECENT DOSE PRIOR TO THE EVENTS: 09/JUN/2017
     Route: 042
     Dates: start: 20170224, end: 20170317
  10. FULVESTRANT [Suspect]
     Active Substance: FULVESTRANT
     Indication: Breast cancer metastatic
     Dosage: MOST RECENT DOSE PRIOR TO THE EVENT LYMPH NODE METASTATIS AXILLA AND PORT A CATH INFECTION: 16/NOV/2
     Route: 030
     Dates: start: 20171002, end: 20171115
  11. EUTHYROX [Concomitant]
     Active Substance: LEVOTHYROXINE SODIUM
     Dates: start: 20170303
  12. BETAISODONA [Concomitant]
     Active Substance: POVIDONE-IODINE
     Indication: Skin fissures
     Dosage: ONGOING = NOT CHECKED
     Dates: start: 20200430, end: 20200515
  13. KCL [Concomitant]
     Active Substance: POTASSIUM CHLORIDE
     Dates: start: 20170429
  14. DEXAMETHASONE [Concomitant]
     Active Substance: DEXAMETHASONE
     Indication: Brain oedema
     Dates: start: 20200422, end: 20200505
  15. ZOFRAN [Concomitant]
     Active Substance: ONDANSETRON HYDROCHLORIDE
     Dates: start: 20200506
  16. LEVOFLOXACIN [Concomitant]
     Active Substance: LEVOFLOXACIN
     Dates: start: 20200506, end: 20200512
  17. NOVALGIN (AUSTRIA) [Concomitant]
     Dates: start: 20170329, end: 20180807
  18. PREGABALIN [Concomitant]
     Active Substance: PREGABALIN
     Dates: start: 20190821
  19. TAZOBACTAM [Concomitant]
     Active Substance: TAZOBACTAM
     Indication: Streptococcal sepsis
     Dates: start: 20200423, end: 20200504
  20. KALIORAL [Concomitant]
     Dates: start: 20200427, end: 20200428
  21. ACETAMINOPHEN [Concomitant]
     Active Substance: ACETAMINOPHEN
     Dates: start: 20200506
  22. FUROSEMIDE [Concomitant]
     Active Substance: FUROSEMIDE
     Dates: start: 20170810
  23. FUROSEMIDE [Concomitant]
     Active Substance: FUROSEMIDE
     Dosage: ONGOING = NOT CHECKED
     Dates: start: 20170810, end: 20171213
  24. XGEVA [Concomitant]
     Active Substance: DENOSUMAB
     Dates: start: 20170202
  25. LEUKICHTAN (AUSTRIA) [Concomitant]
     Dates: start: 20200430, end: 20200515
  26. OLIVE OIL [Concomitant]
     Active Substance: OLIVE OIL
     Indication: Paronychia
     Dates: start: 20191002, end: 20200512
  27. FENTANYL [Concomitant]
     Active Substance: FENTANYL
     Dates: start: 20200515
  28. NERIFORTE [Concomitant]
     Indication: Skin fissures
     Dates: start: 20200430, end: 20200515
  29. OLEOVIT [RETINOL] [Concomitant]
     Dates: start: 20170329
  30. LOVENOX [Concomitant]
     Active Substance: ENOXAPARIN SODIUM
     Dates: start: 20170224, end: 20171130
  31. PANTOPRAZOLE SODIUM [Concomitant]
     Active Substance: PANTOPRAZOLE SODIUM
     Dates: start: 20170722, end: 20180327
  32. PANTOPRAZOLE SODIUM [Concomitant]
     Active Substance: PANTOPRAZOLE SODIUM
     Dates: start: 20200506, end: 20200519
  33. PASPERTIN [Concomitant]
     Dates: start: 20200506
  34. EMEND [Concomitant]
     Active Substance: APREPITANT
     Dates: start: 20200428, end: 20200430
  35. EDOXABAN TOSYLATE [Concomitant]
     Active Substance: EDOXABAN TOSYLATE
     Dates: start: 20191120, end: 20200608
  36. VITAMINS WITH MINERALS [Concomitant]
     Active Substance: MINERALS\VITAMINS
     Dates: start: 20170203
  37. SILICON [Concomitant]
     Active Substance: SILICON
     Indication: Skin fissures
     Dosage: ONGOING = NOT CHECKED
     Dates: start: 20200521, end: 20200602
  38. FENTANYL [Concomitant]
     Active Substance: FENTANYL
     Dates: start: 20200515
  39. DEXAMETHASONE [Concomitant]
     Active Substance: DEXAMETHASONE
     Dates: start: 20171004, end: 20171006
  40. DEXAMETHASONE [Concomitant]
     Active Substance: DEXAMETHASONE
     Dosage: ONGOING = NOT CHECKED
     Dates: start: 20171007, end: 20171008

REACTIONS (8)
  - Metastases to central nervous system [Not Recovered/Not Resolved]
  - Pleural effusion [Recovered/Resolved]
  - Streptococcal sepsis [Recovered/Resolved]
  - Fatigue [Not Recovered/Not Resolved]
  - Brain oedema [Not Recovered/Not Resolved]
  - Metastases to lymph nodes [Not Recovered/Not Resolved]
  - Pseudomonal sepsis [Recovered/Resolved]
  - Vascular device infection [Recovered/Resolved]

NARRATIVE: CASE EVENT DATE: 20170921
